FAERS Safety Report 14746947 (Version 4)
Quarter: 2021Q4

REPORT INFORMATION
  Report Type: Report from Study
  Country: IL (occurrence: IL)
  Receive Date: 20180411
  Receipt Date: 20211019
  Transmission Date: 20220304
  Serious: Yes (Hospitalization, Other)
  Sender: FDA-Public Use
  Company Number: IL-JNJFOC-20170706150

PATIENT
  Age: 6 Decade
  Sex: Female

DRUGS (6)
  1. SIMPONI [Suspect]
     Active Substance: GOLIMUMAB
     Indication: Colitis ulcerative
     Route: 058
     Dates: start: 20150802
  2. SALAZOPYRINE [Suspect]
     Active Substance: SULFASALAZINE
     Indication: Product used for unknown indication
     Route: 065
  3. CYMBALTA [Concomitant]
     Active Substance: DULOXETINE HYDROCHLORIDE
     Route: 065
  4. MODAL [Concomitant]
     Route: 065
  5. TRAZODIL [Concomitant]
     Route: 065
  6. VENOFER [Concomitant]
     Active Substance: IRON SUCROSE
     Route: 042

REACTIONS (8)
  - Hepatitis C [Unknown]
  - Suicidal ideation [Unknown]
  - Mental disorder [Unknown]
  - Eye operation [Unknown]
  - Internal haemorrhage [Unknown]
  - Renal failure [Not Recovered/Not Resolved]
  - Intestinal stent insertion [Recovered/Resolved]
  - Product dose omission issue [Unknown]

NARRATIVE: CASE EVENT DATE: 20180101
